FAERS Safety Report 23323241 (Version 1)
Quarter: 2023Q4

REPORT INFORMATION
  Report Type: Spontaneous
  Country: US (occurrence: None)
  Receive Date: 20231220
  Receipt Date: 20231220
  Transmission Date: 20240109
  Serious: No
  Sender: FDA-Public Use
  Company Number: US-ROCHE-3305339

PATIENT
  Age: 59 Year
  Sex: Male

DRUGS (2)
  1. RITUXAN [Suspect]
     Active Substance: RITUXIMAB
     Indication: Product used for unknown indication
     Route: 065
  2. TAVNEOS [Suspect]
     Active Substance: AVACOPAN
     Indication: Vasculitis
     Route: 048
     Dates: start: 20221028

REACTIONS (9)
  - Off label use [Unknown]
  - Asthenia [Unknown]
  - Memory impairment [Unknown]
  - Aphasia [Unknown]
  - Abdominal discomfort [Unknown]
  - Influenza like illness [Unknown]
  - Dizziness [Unknown]
  - Headache [Unknown]
  - Nausea [Unknown]
